FAERS Safety Report 11118392 (Version 3)
Quarter: 2015Q3

REPORT INFORMATION
  Report Type: Report from Study
  Country: US (occurrence: US)
  Receive Date: 20150518
  Receipt Date: 20150807
  Transmission Date: 20151125
  Serious: Yes (Other)
  Sender: FDA-Public Use
  Company Number: US-BIOGENIDEC-2015BI062734

PATIENT
  Sex: Female

DRUGS (4)
  1. VITAMIN D [Concomitant]
     Active Substance: CHOLECALCIFEROL
  2. TYSABRI [Suspect]
     Active Substance: NATALIZUMAB
     Indication: MULTIPLE SCLEROSIS
     Route: 042
     Dates: end: 20150505
  3. TYSABRI [Suspect]
     Active Substance: NATALIZUMAB
     Indication: MULTIPLE SCLEROSIS
     Route: 042
     Dates: start: 20130417, end: 20141209
  4. AMPYRA [Concomitant]
     Active Substance: DALFAMPRIDINE
     Dates: start: 2013

REACTIONS (4)
  - Exploratory operation [Not Recovered/Not Resolved]
  - Influenza [Not Recovered/Not Resolved]
  - Gait disturbance [Unknown]
  - Foot fracture [Not Recovered/Not Resolved]
